FAERS Safety Report 8435099-9 (Version None)
Quarter: 2012Q2

REPORT INFORMATION
  Report Type: 
  Country: None (occurrence: None)
  Receive Date: 20120614
  Receipt Date: 20120608
  Transmission Date: 20120825
  Serious: Yes (Death, Other)
  Sender: FDA-Public Use
  Company Number: PHEH2012US011670

PATIENT
  Sex: Male
  Weight: 79 kg

DRUGS (6)
  1. NIACIN [Concomitant]
  2. EXJADE [Suspect]
     Indication: IRON OVERLOAD
     Dosage: 1500 MG, DAILY
     Route: 048
     Dates: start: 20101001
  3. LOVASTATIN [Concomitant]
  4. METOPROLOL TARTRATE [Concomitant]
  5. VITAMIN K TAB [Concomitant]
  6. DECITABINE [Concomitant]

REACTIONS (10)
  - ATRIAL FIBRILLATION [None]
  - DEATH [None]
  - MENTAL STATUS CHANGES POSTOPERATIVE [None]
  - CLOSTRIDIUM DIFFICILE COLITIS [None]
  - PNEUMONIA [None]
  - DEMENTIA [None]
  - FALL [None]
  - HYPOPHAGIA [None]
  - HIP FRACTURE [None]
  - WOUND INFECTION [None]
